FAERS Safety Report 7631436-3 (Version None)
Quarter: 2011Q3

REPORT INFORMATION
  Report Type: 
  Country: None (occurrence: None)
  Receive Date: 20110725
  Receipt Date: 20110711
  Transmission Date: 20111222
  Serious: Yes (Hospitalization)
  Sender: FDA-Public Use
  Company Number: KR-ELI_LILLY_AND_COMPANY-KR201107000030

PATIENT
  Age: 29 Year
  Sex: Male

DRUGS (9)
  1. ZYPREXA [Suspect]
     Dosage: 20 MG, QD
     Route: 048
     Dates: start: 20060801
  2. ZYPREXA [Suspect]
     Dosage: 10 MG, QD
     Route: 048
  3. HALOPERIDOL [Concomitant]
     Dosage: 9 MG, UNK
     Dates: end: 20110101
  4. FLUOXETINE [Concomitant]
  5. ZYPREXA [Suspect]
     Indication: SCHIZOPHRENIA
     Dosage: 20 MG, QD
     Route: 048
     Dates: start: 20001201
  6. ZYPREXA [Suspect]
     Dosage: 15 MG, QD
     Route: 048
  7. HALOPERIDOL [Concomitant]
     Dosage: 15 MG, UNK
     Dates: start: 20110101
  8. ZYPREXA [Suspect]
     Dosage: 30 MG, QD
     Route: 048
     Dates: start: 20110101, end: 20110629
  9. ZYPREXA [Suspect]
     Dosage: 20 MG, QD
     Route: 048
     Dates: start: 20110101

REACTIONS (3)
  - CONVULSION [None]
  - OVERDOSE [None]
  - AGGRESSION [None]
